FAERS Safety Report 5418168-7 (Version None)
Quarter: 2007Q3

REPORT INFORMATION
  Report Type: 
  Country: None (occurrence: None)
  Receive Date: 20070817
  Receipt Date: 20070809
  Transmission Date: 20080115
  Serious: Yes (Hospitalization, Other)
  Sender: FDA-Public Use
  Company Number: US-PURDUE-USA_2007_0028019

PATIENT
  Age: 50 Year
  Sex: Male
  Weight: 78 kg

DRUGS (5)
  1. OXYCONTIN [Suspect]
     Indication: CERVICAL VERTEBRAL FRACTURE
     Dosage: UNK, SEE TEXT
     Dates: start: 19990725
  2. VICODIN [Concomitant]
     Dosage: 10 MG, TID
  3. ALPRAZOLAM [Concomitant]
     Dosage: 1 MG, TID
  4. QUINAPRIL HCL [Concomitant]
     Dosage: 10 MG, DAILY
  5. BENZONATATE [Concomitant]
     Dosage: 200 MG, TID

REACTIONS (8)
  - CERVICAL VERTEBRAL FRACTURE [None]
  - DRUG DEPENDENCE [None]
  - DRUG WITHDRAWAL SYNDROME [None]
  - HEAD INJURY [None]
  - HYPERHIDROSIS [None]
  - MALAISE [None]
  - NAUSEA [None]
  - NIGHTMARE [None]
